FAERS Safety Report 8641550 (Version 3)
Quarter: 2013Q4

REPORT INFORMATION
  Report Type: Spontaneous
  Country: US (occurrence: US)
  Receive Date: 20120628
  Receipt Date: 20131223
  Transmission Date: 20140711
  Serious: Yes (Hospitalization)
  Sender: FDA-Public Use
  Company Number: US-GLAXOSMITHKLINE-A0982509A

PATIENT
  Age: 46 Year
  Sex: Female

DRUGS (2)
  1. FLOLAN [Suspect]
     Indication: PULMONARY ARTERIAL HYPERTENSION
     Dosage: 60.5NG CONTINUOUS
     Route: 042
     Dates: start: 20071129
  2. REVATIO [Concomitant]

REACTIONS (7)
  - Sepsis [Unknown]
  - Pneumonia [Unknown]
  - Bronchitis [Unknown]
  - Catheter site swelling [Unknown]
  - Catheter site erythema [Unknown]
  - Catheter site pain [Unknown]
  - Nasopharyngitis [Not Recovered/Not Resolved]
